FAERS Safety Report 9582216 (Version 1)
Quarter: 2013Q4

REPORT INFORMATION
  Report Type: Spontaneous
  Country: JP (occurrence: JP)
  Receive Date: 20131002
  Receipt Date: 20131002
  Transmission Date: 20140711
  Serious: Yes (Other)
  Sender: FDA-Public Use
  Company Number: JP-MYLANLABS-2013S1021320

PATIENT
  Age: 68 Year
  Sex: Female

DRUGS (1)
  1. IRINOTECAN [Suspect]
     Indication: ADENOID CYSTIC CARCINOMA
     Dosage: 5 DOSES PER WEEK
     Route: 065

REACTIONS (4)
  - Neutropenia [Recovering/Resolving]
  - Nausea [Recovering/Resolving]
  - Anaemia [Recovering/Resolving]
  - Radiation skin injury [Recovering/Resolving]
